FAERS Safety Report 8146688-3 (Version None)
Quarter: 2012Q1

REPORT INFORMATION
  Report Type: 
  Country: None (occurrence: None)
  Receive Date: 20120217
  Receipt Date: 20110531
  Transmission Date: 20120608
  Serious: No
  Sender: FDA-Public Use
  Company Number: US-ABBOTT-11P-163-0730038-00

PATIENT
  Sex: Male
  Weight: 122.58 kg

DRUGS (4)
  1. METFORMIN HCL [Concomitant]
     Indication: DIABETES MELLITUS
  2. SIMCOR [Suspect]
     Indication: BLOOD CHOLESTEROL INCREASED
     Dosage: 1000/20MG
     Dates: start: 20110201, end: 20110526
  3. SIMCOR [Suspect]
     Dosage: 500/20 MILLIGRAMS
     Dates: start: 20100201, end: 20110101
  4. ATENOLOL [Concomitant]
     Indication: HYPERTENSION

REACTIONS (2)
  - MUSCLE FATIGUE [None]
  - MYALGIA [None]
